FAERS Safety Report 22886649 (Version 2)
Quarter: 2023Q4

REPORT INFORMATION
  Report Type: Report from Study
  Country: CA (occurrence: CA)
  Receive Date: 20230831
  Receipt Date: 20231213
  Transmission Date: 20240110
  Serious: Yes (Hospitalization, Other)
  Sender: FDA-Public Use
  Company Number: CA-JNJFOC-20230758863

PATIENT
  Age: 25 Year
  Sex: Female
  Weight: 72 kg

DRUGS (3)
  1. SIMPONI [Suspect]
     Active Substance: GOLIMUMAB
     Indication: Crohn^s disease
     Route: 058
  2. SIMPONI [Suspect]
     Active Substance: GOLIMUMAB
  3. SUBOXONE [Suspect]
     Active Substance: BUPRENORPHINE HYDROCHLORIDE\NALOXONE HYDROCHLORIDE
     Indication: Product used for unknown indication
     Route: 065

REACTIONS (7)
  - Psychotic disorder [Recovered/Resolved]
  - Wrist fracture [Recovering/Resolving]
  - Fall [Unknown]
  - Abscess limb [Not Recovered/Not Resolved]
  - Rash [Not Recovered/Not Resolved]
  - Detoxification [Not Recovered/Not Resolved]
  - Rehabilitation therapy [Not Recovered/Not Resolved]

NARRATIVE: CASE EVENT DATE: 20230101
